FAERS Safety Report 8117789-0 (Version None)
Quarter: 2012Q1

REPORT INFORMATION
  Report Type: 
  Country: None (occurrence: None)
  Receive Date: 20120131
  Receipt Date: 20100311
  Transmission Date: 20120608
  Serious: Yes (Hospitalization, Other)
  Sender: FDA-Public Use
  Company Number: ELAN00014

PATIENT
  Age: 45 Year
  Sex: Female

DRUGS (9)
  1. IBUPROFEN [Concomitant]
  2. METOCLOPRAMIDE [Concomitant]
  3. DOCETAXEL [Suspect]
     Indication: BREAST CANCER METASTATIC
     Dosage: (75 MG/M2) ; (150 MG/M2)
  4. DOXORUBICIN HCL [Suspect]
     Indication: BREAST CANCER METASTATIC
     Dosage: (50 MG/M2) INTRAVENOUS
     Route: 042
  5. OMEPRAZOLE [Suspect]
  6. ERYMAX [Suspect]
     Indication: PROPHYLAXIS
     Dosage: ORAL
     Route: 048
     Dates: start: 19950101
  7. GRANISETRON [Concomitant]
  8. DEXAMETHASONE [Concomitant]
  9. MORPHINE SULFATE INJ [Concomitant]

REACTIONS (13)
  - FLATULENCE [None]
  - PSEUDOMEMBRANOUS COLITIS [None]
  - DIARRHOEA [None]
  - VOMITING [None]
  - DRUG INTERACTION [None]
  - HAEMATEMESIS [None]
  - FEBRILE NEUTROPENIA [None]
  - RASH ERYTHEMATOUS [None]
  - ABDOMINAL PAIN [None]
  - MOUTH ULCERATION [None]
  - ABDOMINAL DISTENSION [None]
  - ENTEROCOLITIS [None]
  - JAUNDICE CHOLESTATIC [None]
